FAERS Safety Report 22629334 (Version 1)
Quarter: 2023Q2

REPORT INFORMATION
  Report Type: Report from Study
  Country: BE (occurrence: BE)
  Receive Date: 20230622
  Receipt Date: 20230622
  Transmission Date: 20230722
  Serious: Yes (Death)
  Sender: FDA-Public Use
  Company Number: BE-MYLANLABS-2023M1048145

PATIENT
  Age: 20 Year
  Sex: Female

DRUGS (3)
  1. FENTANYL [Suspect]
     Active Substance: FENTANYL
     Indication: Product used for unknown indication
     Dosage: UNK
     Route: 042
  2. ALPRAZOLAM [Suspect]
     Active Substance: ALPRAZOLAM
     Indication: Product used for unknown indication
     Dosage: UNK (INJECTION)
     Route: 042
  3. Drospirenone;Estetrol [Concomitant]
     Indication: Oral contraception
     Dosage: 1 DOSAGE FORM, QD
     Route: 048
     Dates: start: 20161010, end: 20170411

REACTIONS (4)
  - Accidental overdose [Fatal]
  - Toxicity to various agents [Fatal]
  - Pulmonary oedema [Fatal]
  - Unresponsive to stimuli [Fatal]

NARRATIVE: CASE EVENT DATE: 20170412
